FAERS Safety Report 5097875-2 (Version None)
Quarter: 2006Q3

REPORT INFORMATION
  Report Type: 
  Country: None (occurrence: None)
  Receive Date: 20060905
  Receipt Date: 20060905
  Transmission Date: 20061208
  Serious: No
  Sender: FDA-Public Use
  Company Number: None

PATIENT
  Age: 38 Year
  Sex: Male
  Weight: 102.1 kg

DRUGS (2)
  1. FLOLAN [Suspect]
     Indication: PULMONARY HYPERTENSION
     Dosage: 7 NG PER KG PER MIN CONTINOUS IV DRIP
     Route: 042
     Dates: start: 20041015, end: 20060901
  2. FLOLAN [Suspect]
     Dosage: 77 ML PER DAY CONTNOUS IV DRIP
     Route: 041
     Dates: start: 20041015, end: 20060901

REACTIONS (2)
  - LEUKOCYTOCLASTIC VASCULITIS [None]
  - PRURITUS [None]
